FAERS Safety Report 9262797 (Version 1)
Quarter: 2013Q2

REPORT INFORMATION
  Report Type: Spontaneous
  Country: US (occurrence: None)
  Receive Date: 20130426
  Receipt Date: 20130426
  Transmission Date: 20140414
  Serious: No
  Sender: FDA-Public Use
  Company Number: None

PATIENT
  Age: 34 Year
  Sex: Male
  Weight: 77 kg

DRUGS (3)
  1. RISPERIDONE [Suspect]
     Indication: ANXIETY
     Route: 048
     Dates: start: 20100803, end: 20121201
  2. RISPERIDONE [Suspect]
     Indication: AGITATION
     Route: 048
     Dates: start: 20100803, end: 20121201
  3. HYDROCHLOROTHIAZIDE [Suspect]
     Indication: BLOOD PRESSURE
     Dosage: AM
     Dates: start: 20100712

REACTIONS (2)
  - Syncope [None]
  - Confusional state [None]
